FAERS Safety Report 5821772-5 (Version None)
Quarter: 2008Q3

REPORT INFORMATION
  Report Type: 
  Country: None (occurrence: None)
  Receive Date: 20080724
  Receipt Date: 20080604
  Transmission Date: 20090109
  Serious: Yes (Death, Other)
  Sender: FDA-Public Use
  Company Number: US-ASTRAZENECA-2007UW07461

PATIENT
  Age: 71 Year
  Sex: Male
  Weight: 73.5 kg

DRUGS (3)
  1. SEROQUEL [Suspect]
     Indication: SLEEP DISORDER
     Route: 048
     Dates: start: 20050412, end: 20050413
  2. RISPERDAL [Concomitant]
  3. ZYPREXA [Concomitant]

REACTIONS (3)
  - CONVULSION [None]
  - NEUROLEPTIC MALIGNANT SYNDROME [None]
  - STREPTOCOCCAL SEPSIS [None]
